FAERS Safety Report 25418535 (Version 1)
Quarter: 2025Q2

REPORT INFORMATION
  Report Type: Spontaneous
  Country: NL (occurrence: None)
  Receive Date: 20250610
  Receipt Date: 20250610
  Transmission Date: 20250716
  Serious: Yes (unspecified)
  Sender: FDA-CTU
  Company Number: None

PATIENT
  Age: 34 Year
  Sex: Male
  Weight: 85.5 kg

DRUGS (2)
  1. GALANTAMINE [Suspect]
     Active Substance: GALANTAMINE
  2. ROXADUSTAT [Suspect]
     Active Substance: ROXADUSTAT

REACTIONS (1)
  - Thrombosis [None]

NARRATIVE: CASE EVENT DATE: 19911111
